FAERS Safety Report 11626408 (Version 1)
Quarter: 2015Q4

REPORT INFORMATION
  Report Type: Spontaneous
  Country: US (occurrence: US)
  Receive Date: 20151013
  Receipt Date: 20151013
  Transmission Date: 20160304
  Serious: No
  Sender: FDA-Public Use
  Company Number: US-ROCHE-1599055

PATIENT
  Age: 55 Year
  Sex: Female

DRUGS (2)
  1. ZELBORAF [Suspect]
     Active Substance: VEMURAFENIB
     Indication: MALIGNANT MELANOMA
     Route: 048
     Dates: start: 20150520
  2. ZELBORAF [Suspect]
     Active Substance: VEMURAFENIB
     Dosage: ONE PILL IN AM AND ONE PILL IN PM
     Route: 048

REACTIONS (3)
  - Erythema [Not Recovered/Not Resolved]
  - Joint swelling [Not Recovered/Not Resolved]
  - Skin papilloma [Unknown]

NARRATIVE: CASE EVENT DATE: 20150618
